FAERS Safety Report 20017864 (Version 1)
Quarter: 2021Q4

REPORT INFORMATION
  Report Type: Spontaneous
  Country: US (occurrence: None)
  Receive Date: 20211101
  Receipt Date: 20211101
  Transmission Date: 20220303
  Serious: Yes (Hospitalization)
  Sender: FDA-Public Use
  Company Number: US-Unichem Pharmaceuticals (USA) Inc-UCM202110-000997

PATIENT
  Age: 32 Year
  Sex: Male

DRUGS (4)
  1. AMLODIPINE [Suspect]
     Active Substance: AMLODIPINE BESYLATE
     Indication: Overdose
     Dosage: 300 MG
  2. BUPROPION [Suspect]
     Active Substance: BUPROPION
     Indication: Overdose
     Dosage: 1500 MG
  3. ALPRAZOLAM [Suspect]
     Active Substance: ALPRAZOLAM
     Indication: Overdose
     Dosage: 3 MG
  4. ZOLPIDEM [Suspect]
     Active Substance: ZOLPIDEM TARTRATE
     Indication: Overdose
     Dosage: UNKNOWN

REACTIONS (4)
  - Dysarthria [Recovering/Resolving]
  - Lethargy [Recovering/Resolving]
  - Distributive shock [Recovering/Resolving]
  - Intentional overdose [Unknown]
